FAERS Safety Report 9185114 (Version 1)
Quarter: 2012Q4

REPORT INFORMATION
  Report Type: 
  Country: US (occurrence: US)
  Receive Date: 20121101
  Receipt Date: 20121101
  Transmission Date: 20130627
  Serious: No
  Sender: FDA-Public Use
  Company Number: US-PFIZER INC-2012270654

PATIENT
  Age: 55 Year
  Sex: Male

DRUGS (1)
  1. PROPANOLOL HCL [Suspect]
     Dosage: 120 mg, UNK
     Dates: start: 201210

REACTIONS (3)
  - Drug ineffective [Unknown]
  - Palpitations [Unknown]
  - Chest pain [Unknown]
